FAERS Safety Report 13813131 (Version 1)
Quarter: 2017Q3

REPORT INFORMATION
  Report Type: Spontaneous
  Country: US (occurrence: US)
  Receive Date: 20170731
  Receipt Date: 20170731
  Transmission Date: 20171127
  Serious: No
  Sender: FDA-Public Use
  Company Number: US-ELI_LILLY_AND_COMPANY-US201707006871

PATIENT
  Sex: Male

DRUGS (2)
  1. LANTUS [Concomitant]
     Active Substance: INSULIN GLARGINE
     Indication: TYPE 2 DIABETES MELLITUS
     Dosage: UNK, DAILY, MORNING
  2. HUMALOG [Suspect]
     Active Substance: INSULIN LISPRO
     Indication: TYPE 2 DIABETES MELLITUS
     Dosage: UNK, TID
     Route: 058
     Dates: start: 20170413

REACTIONS (8)
  - Hyperkeratosis [Unknown]
  - Muscular weakness [Unknown]
  - Neuropathy peripheral [Unknown]
  - Injection site pain [Unknown]
  - Arthralgia [Unknown]
  - Drug dose omission [Unknown]
  - Blood glucose increased [Unknown]
  - Hypoaesthesia [Unknown]
